FAERS Safety Report 15499914 (Version 2)
Quarter: 2018Q4

REPORT INFORMATION
  Report Type: Spontaneous
  Country: BA (occurrence: BA)
  Receive Date: 20181015
  Receipt Date: 20181018
  Transmission Date: 20190205
  Serious: Yes (Other)
  Sender: FDA-Public Use
  Company Number: PHHY2018BA120721

PATIENT
  Sex: Female

DRUGS (1)
  1. METOPROLOL. [Suspect]
     Active Substance: METOPROLOL
     Indication: CARDIAC FAILURE
     Route: 065

REACTIONS (4)
  - Condition aggravated [Unknown]
  - Maternal exposure during pregnancy [Unknown]
  - Peripartum cardiomyopathy [Unknown]
  - Product use in unapproved indication [Unknown]
